FAERS Safety Report 16001286 (Version 1)
Quarter: 2019Q1

REPORT INFORMATION
  Report Type: Spontaneous
  Country: US (occurrence: US)
  Receive Date: 20190224
  Receipt Date: 20190224
  Transmission Date: 20190418
  Serious: No
  Sender: FDA-Public Use
  Company Number: None

PATIENT
  Age: 28 Year
  Sex: Female
  Weight: 72 kg

DRUGS (1)
  1. VRAYLAR [Suspect]
     Active Substance: CARIPRAZINE
     Indication: BIPOLAR DISORDER
     Dosage: QUANTITY:1 CAPSULE(S); AT BEDTIME?
     Route: 048
     Dates: start: 20190221, end: 20190224

REACTIONS (1)
  - Akathisia [None]

NARRATIVE: CASE EVENT DATE: 20190224
